FAERS Safety Report 10995216 (Version 1)
Quarter: 2015Q2

REPORT INFORMATION
  Report Type: Spontaneous
  Country: FR (occurrence: FR)
  Receive Date: 20150407
  Receipt Date: 20150407
  Transmission Date: 20150821
  Serious: Yes (Hospitalization)
  Sender: FDA-Public Use
  Company Number: FR-TEVA-552816ISR

PATIENT
  Age: 21 Year
  Sex: Female

DRUGS (1)
  1. LEELOO [Suspect]
     Active Substance: ETHINYL ESTRADIOL\LEVONORGESTREL
     Indication: ORAL CONTRACEPTION
     Route: 048
     Dates: end: 201501

REACTIONS (3)
  - Headache [Unknown]
  - Ischaemic stroke [Recovered/Resolved]
  - Migraine with aura [Unknown]

NARRATIVE: CASE EVENT DATE: 20140112
